FAERS Safety Report 25017749 (Version 1)
Quarter: 2025Q1

REPORT INFORMATION
  Report Type: Spontaneous
  Country: US (occurrence: None)
  Receive Date: 20250226
  Receipt Date: 20250226
  Transmission Date: 20250409
  Serious: Yes (Other)
  Sender: FDA-CTU
  Company Number: None

PATIENT
  Age: 54 Year
  Sex: Female
  Weight: 80.1 kg

DRUGS (5)
  1. VEOZAH [Suspect]
     Active Substance: FEZOLINETANT
     Indication: Hot flush
     Dosage: 1 TABLET AT BEDTIME ORAL ?
     Route: 048
     Dates: start: 20250209, end: 20250224
  2. ZOLOFT [Concomitant]
     Active Substance: SERTRALINE HYDROCHLORIDE
  3. LAMOTRIGINE [Concomitant]
     Active Substance: LAMOTRIGINE
  4. KRILL OIL [Concomitant]
     Active Substance: DIETARY SUPPLEMENT\KRILL OIL
  5. ONE A DAY OVER 50 VITAMINS [Concomitant]

REACTIONS (6)
  - Palpitations [None]
  - Depression [None]
  - Fluid retention [None]
  - Pollakiuria [None]
  - Blood pressure increased [None]
  - Emotional poverty [None]

NARRATIVE: CASE EVENT DATE: 20250217
